FAERS Safety Report 8620644-0 (Version None)
Quarter: 2012Q3

REPORT INFORMATION
  Report Type: 
  Country: None (occurrence: None)
  Receive Date: 20120824
  Receipt Date: 20120822
  Transmission Date: 20120928
  Serious: Yes (Hospitalization)
  Sender: FDA-Public Use
  Company Number: DE-ELI_LILLY_AND_COMPANY-DE201207001784

PATIENT
  Age: 79 Year
  Sex: Female
  Weight: 78 kg

DRUGS (3)
  1. ASPIRIN [Concomitant]
     Dosage: 300-500 MG QD
     Route: 048
  2. EFFIENT [Suspect]
     Dosage: 60 MG, QD
     Route: 048
     Dates: start: 20110123, end: 20110123
  3. EFFIENT [Suspect]
     Dosage: 10 MG, QD
     Route: 048
     Dates: start: 20110124

REACTIONS (2)
  - INFECTION [None]
  - ABDOMINAL WALL HAEMATOMA [None]
